FAERS Safety Report 4317122-6 (Version None)
Quarter: 2004Q1

REPORT INFORMATION
  Report Type: 
  Country: None (occurrence: None)
  Receive Date: 20040312
  Receipt Date: 20040225
  Transmission Date: 20041129
  Serious: Yes (Hospitalization, Other)
  Sender: FDA-Public Use
  Company Number: IE-SHR-04-021684

PATIENT
  Sex: Female

DRUGS (1)
  1. MIRENA [Suspect]
     Dosage: 20 UG/DAY, CONT, INTRA-UTERINE
     Route: 015
     Dates: start: 20010101

REACTIONS (4)
  - CIRCULATORY COLLAPSE [None]
  - HAEMORRHAGE [None]
  - IATROGENIC INJURY [None]
  - VAGINAL LACERATION [None]
